FAERS Safety Report 4761166-7 (Version None)
Quarter: 2005Q3

REPORT INFORMATION
  Report Type: 
  Country: None (occurrence: None)
  Receive Date: 20050906
  Receipt Date: 20050829
  Transmission Date: 20060218
  Serious: Yes (Hospitalization)
  Sender: FDA-Public Use
  Company Number: BR-BOEHRINGER INGELHEIM PHARMACEUTICALS, INC.-2005-BP-15063BR

PATIENT
  Age: 6 Year
  Sex: Male

DRUGS (3)
  1. ATROVENT [Suspect]
     Indication: ALLERGIC BRONCHITIS
     Route: 055
     Dates: start: 20050601
  2. BEROTEC [Suspect]
     Indication: ALLERGIC BRONCHITIS
     Route: 055
     Dates: start: 20050601
  3. BRONDILAT [Concomitant]
     Indication: ALLERGIC BRONCHITIS

REACTIONS (6)
  - ADVERSE EVENT [None]
  - HYPERHIDROSIS [None]
  - MALAISE [None]
  - ORAL CANDIDIASIS [None]
  - PNEUMONIA [None]
  - TACHYCARDIA [None]
